FAERS Safety Report 21560978 (Version 1)
Quarter: 2022Q4

REPORT INFORMATION
  Report Type: Spontaneous
  Country: US (occurrence: US)
  Receive Date: 20221107
  Receipt Date: 20221107
  Transmission Date: 20230113
  Serious: Yes (Hospitalization)
  Sender: FDA-Public Use
  Company Number: US-UPSHER-SMITH LABORATORIES, LLC-2022USL00866

PATIENT
  Age: 84 Year
  Sex: Male
  Weight: 88.435 kg

DRUGS (12)
  1. JANTOVEN [Suspect]
     Active Substance: WARFARIN SODIUM
     Indication: Intracardiac thrombus
     Dosage: 5 MG, 1X/DAY
     Route: 048
     Dates: start: 202105, end: 20220925
  2. JANTOVEN [Suspect]
     Active Substance: WARFARIN SODIUM
     Dosage: 5 MG, 1X/DAY
     Route: 048
     Dates: start: 20220926, end: 20221019
  3. JANTOVEN [Suspect]
     Active Substance: WARFARIN SODIUM
     Dosage: 10 MG, 1X/DAY
     Route: 048
     Dates: start: 20221020, end: 20221020
  4. JANTOVEN [Suspect]
     Active Substance: WARFARIN SODIUM
     Dosage: 7.5 MG, 1X/DAY
     Route: 048
     Dates: start: 20221021, end: 20221021
  5. JANTOVEN [Suspect]
     Active Substance: WARFARIN SODIUM
     Dosage: 5 MG, 1X/DAY
     Route: 048
     Dates: start: 20221022, end: 20221023
  6. JANTOVEN [Suspect]
     Active Substance: WARFARIN SODIUM
     Dosage: 10 MG, 1X/DAY
     Route: 048
     Dates: start: 20221024, end: 20221024
  7. JANTOVEN [Suspect]
     Active Substance: WARFARIN SODIUM
     Dosage: 7.5 MG, 1X/DAY
     Route: 048
     Dates: start: 20221025, end: 20221025
  8. LEQVIO [Suspect]
     Active Substance: INCLISIRAN SODIUM
     Dosage: 1 SHOT FOLLOWED BY A 2ND SHOT IN 3 MONTHS AND THEN EVERY 6 MONTHS
     Dates: start: 20220926
  9. LISINOPRIL [Concomitant]
     Active Substance: LISINOPRIL
  10. METOPROLOL [Concomitant]
     Active Substance: METOPROLOL
  11. FINASTERIDE [Concomitant]
     Active Substance: FINASTERIDE
     Dosage: UNK
  12. PLAVIX [Concomitant]
     Active Substance: CLOPIDOGREL BISULFATE

REACTIONS (3)
  - Acute myocardial infarction [Unknown]
  - Ventricular tachycardia [Unknown]
  - International normalised ratio decreased [Recovering/Resolving]

NARRATIVE: CASE EVENT DATE: 20220801
